FAERS Safety Report 5996444-7 (Version None)
Quarter: 2008Q4

REPORT INFORMATION
  Report Type: 
  Country: None (occurrence: None)
  Receive Date: 20081212
  Receipt Date: 20081017
  Transmission Date: 20090506
  Serious: No
  Sender: FDA-Public Use
  Company Number: US-ABBOTT-08P-163-0482514-00

PATIENT
  Sex: Female

DRUGS (7)
  1. HUMIRA [Suspect]
     Indication: RHEUMATOID ARTHRITIS
     Dates: start: 20080401
  2. HUMIRA [Suspect]
     Dates: start: 20080901
  3. LEFLUNOMIDE [Concomitant]
     Indication: RHEUMATOID ARTHRITIS
     Route: 048
  4. OXAPROZIN [Concomitant]
     Indication: RHEUMATOID ARTHRITIS
     Route: 048
     Dates: end: 20081017
  5. FEXOFENADINE [Concomitant]
     Indication: SINUS DISORDER
     Route: 048
  6. SERETIDE [Concomitant]
     Indication: ASTHMA
     Route: 055
  7. ASTELLIN [Concomitant]
     Indication: SINUS DISORDER

REACTIONS (7)
  - BLOOD COUNT ABNORMAL [None]
  - GAIT DISTURBANCE [None]
  - INFECTION [None]
  - JOINT RANGE OF MOTION DECREASED [None]
  - MUSCULOSKELETAL PAIN [None]
  - PAIN [None]
  - SWELLING [None]
